FAERS Safety Report 12335184 (Version 2)
Quarter: 2016Q2

REPORT INFORMATION
  Report Type: Spontaneous
  Country: ES (occurrence: ES)
  Receive Date: 20160504
  Receipt Date: 20160519
  Transmission Date: 20160815
  Serious: Yes (Other)
  Sender: FDA-Public Use
  Company Number: PHHY2016ES059004

PATIENT
  Age: 51 Year
  Sex: Male

DRUGS (4)
  1. TACROLIMUS. [Suspect]
     Active Substance: TACROLIMUS
     Dosage: 2 MG, Q12H
     Route: 065
  2. METHYLPREDNISOLONE. [Concomitant]
     Active Substance: METHYLPREDNISOLONE
     Indication: POLYMYOSITIS
     Dosage: 4 MG, QD
     Route: 065
  3. TACROLIMUS. [Suspect]
     Active Substance: TACROLIMUS
     Indication: POLYMYOSITIS
     Dosage: 1 MG, Q12H
     Route: 065
  4. TACROLIMUS. [Suspect]
     Active Substance: TACROLIMUS
     Dosage: 1.5 MG, Q12H
     Route: 065

REACTIONS (4)
  - Condition aggravated [Recovered/Resolved]
  - Gynaecomastia [Unknown]
  - Drug ineffective [Recovered/Resolved]
  - Polymyositis [Unknown]
